FAERS Safety Report 7012039-0 (Version None)
Quarter: 2010Q3

REPORT INFORMATION
  Report Type: 
  Country: None (occurrence: None)
  Receive Date: 20100924
  Receipt Date: 20100917
  Transmission Date: 20110219
  Serious: No
  Sender: FDA-Public Use
  Company Number: 2009BI005607

PATIENT
  Sex: Female

DRUGS (1)
  1. TYSABRI [Suspect]
     Indication: MULTIPLE SCLEROSIS
     Route: 042
     Dates: start: 20071201

REACTIONS (6)
  - DEPRESSION [None]
  - GASTROENTERITIS VIRAL [None]
  - IMMUNE SYSTEM DISORDER [None]
  - INFLUENZA [None]
  - MEMORY IMPAIRMENT [None]
  - OROPHARYNGEAL PAIN [None]
